FAERS Safety Report 8377433-4 (Version None)
Quarter: 2012Q2

REPORT INFORMATION
  Report Type: 
  Country: None (occurrence: None)
  Receive Date: 20120522
  Receipt Date: 20110510
  Transmission Date: 20120825
  Serious: No
  Sender: FDA-Public Use
  Company Number: US-ASTRAZENECA-2011SE28629

PATIENT
  Age: 40 Year
  Sex: Male

DRUGS (1)
  1. PRILOSEC [Suspect]
     Route: 048
     Dates: start: 19980101

REACTIONS (4)
  - CHEST PAIN [None]
  - DRUG INEFFECTIVE [None]
  - OESOPHAGEAL SPASM [None]
  - BACK PAIN [None]
